FAERS Safety Report 8662733 (Version 3)
Quarter: 2014Q1

REPORT INFORMATION
  Report Type: Report from Study
  Country: DE (occurrence: DE)
  Receive Date: 20120712
  Receipt Date: 20140220
  Transmission Date: 20141002
  Serious: Yes (Death, Hospitalization)
  Sender: FDA-Public Use
  Company Number: DE-CELGENEUS-062-50794-12060405

PATIENT
  Age: 74 Year
  Sex: Male
  Weight: 78.5 kg

DRUGS (4)
  1. VIDAZA [Suspect]
     Indication: REFRACTORY ANAEMIA WITH AN EXCESS OF BLASTS
     Dosage: 75 MILLIGRAM/SQ. METER
     Route: 058
     Dates: start: 20120416, end: 20120420
  2. VIDAZA [Suspect]
     Route: 065
     Dates: start: 20120514, end: 20120521
  3. ASS [Concomitant]
     Indication: THROMBOSIS PROPHYLAXIS
     Route: 065
  4. METOPROLOL [Concomitant]
     Indication: PROPHYLAXIS
     Route: 065

REACTIONS (3)
  - Oesophageal candidiasis [Recovered/Resolved]
  - Stomatitis [Recovered/Resolved]
  - Escherichia sepsis [Fatal]
